FAERS Safety Report 9528499 (Version 1)
Quarter: 2013Q1

REPORT INFORMATION
  Report Type: Spontaneous
  Country: US (occurrence: None)
  Receive Date: 20130314
  Receipt Date: 20130314
  Transmission Date: 20140127
  Serious: No
  Sender: FDA-Public Use
  Company Number: 1212USA010102

PATIENT
  Age: 48 Year
  Sex: Male

DRUGS (3)
  1. PEGINTRON [Suspect]
     Indication: HEPATITIS C
     Dates: start: 20121115
  2. RIBAVIRIN [Suspect]
     Indication: HEPATITIS C
     Dates: start: 20121116
  3. VICTRELIS (BOCEPREVIR) CAPSULE [Suspect]
     Indication: HEPATITIS C
     Dates: start: 20121213

REACTIONS (8)
  - Pulmonary congestion [None]
  - Gastric disorder [None]
  - Injection site reaction [None]
  - Cough [None]
  - Malaise [None]
  - Dyspnoea [None]
  - Decreased appetite [None]
  - Pyrexia [None]
